FAERS Safety Report 7606477-2 (Version None)
Quarter: 2011Q3

REPORT INFORMATION
  Report Type: 
  Country: None (occurrence: None)
  Receive Date: 20110713
  Receipt Date: 20110711
  Transmission Date: 20111222
  Serious: Yes (Hospitalization)
  Sender: FDA-Public Use
  Company Number: IE-BAYER-2011-060230

PATIENT
  Age: 79 Year
  Sex: Male

DRUGS (3)
  1. OPIATES [Concomitant]
  2. ANTIBIOTICS [Concomitant]
  3. NEXAVAR [Suspect]
     Indication: HEPATIC NEOPLASM MALIGNANT
     Dosage: 400 MG, BID
     Route: 048
     Dates: start: 20110701

REACTIONS (2)
  - DEMENTIA [None]
  - CONFUSIONAL STATE [None]
